FAERS Safety Report 10618967 (Version 1)
Quarter: 2014Q4

REPORT INFORMATION
  Report Type: Spontaneous
  Country: DE (occurrence: None)
  Receive Date: 20141126
  Receipt Date: 20141126
  Transmission Date: 20150529
  Serious: Yes (Hospitalization, Other)
  Sender: FDA-Public Use
  Company Number: DE-ZYDUS-005746

PATIENT
  Age: 22 Year
  Sex: Female

DRUGS (15)
  1. DIAZEPAM. [Concomitant]
     Active Substance: DIAZEPAM
  2. MIDAZOLAM [Concomitant]
     Active Substance: MIDAZOLAM\MIDAZOLAM HYDROCHLORIDE
  3. LEVETIRACETAM. [Suspect]
     Active Substance: LEVETIRACETAM
     Indication: IDIOPATHIC GENERALISED EPILEPSY
     Route: 048
     Dates: end: 20131011
  4. VALPROIC ACID. [Suspect]
     Active Substance: VALPROIC ACID
     Indication: IDIOPATHIC GENERALISED EPILEPSY
     Route: 048
     Dates: start: 20130625, end: 20131011
  5. TOPIRAMATE. [Suspect]
     Active Substance: TOPIRAMATE
     Indication: IDIOPATHIC GENERALISED EPILEPSY
     Route: 048
     Dates: end: 20131011
  6. NEOSTIGMINE [Concomitant]
     Active Substance: NEOSTIGMINE
  7. CEFUROXIME. [Concomitant]
     Active Substance: CEFUROXIME
  8. LAMOTRIGINE. [Concomitant]
     Active Substance: LAMOTRIGINE
  9. LORAZEPAM. [Concomitant]
     Active Substance: LORAZEPAM
  10. PYRIDOXINE [Concomitant]
     Active Substance: PYRIDOXINE
  11. METOCLOPRAMIDE. [Concomitant]
     Active Substance: METOCLOPRAMIDE
  12. PROPOFOL. [Concomitant]
     Active Substance: PROPOFOL
  13. FOLIC ACID. [Concomitant]
     Active Substance: FOLIC ACID
  14. AMPICILLIN [Concomitant]
     Active Substance: AMPICILLIN
  15. CLOBAZAM [Suspect]
     Active Substance: CLOBAZAM
     Indication: IDIOPATHIC GENERALISED EPILEPSY
     Route: 048
     Dates: end: 20131011

REACTIONS (9)
  - Caesarean section [None]
  - Pregnancy [None]
  - Ileus paralytic [None]
  - Seizure [None]
  - Maternal exposure during pregnancy [None]
  - Drug effect decreased [None]
  - Urinary tract infection [None]
  - Ultrasound Doppler abnormal [None]
  - Premature delivery [None]
